FAERS Safety Report 11213885 (Version 3)
Quarter: 2015Q3

REPORT INFORMATION
  Report Type: Spontaneous
  Country: US (occurrence: US)
  Receive Date: 20150623
  Receipt Date: 20150831
  Transmission Date: 20151125
  Serious: Yes (Other)
  Sender: FDA-Public Use
  Company Number: US-PFIZER INC-2015207250

PATIENT
  Age: 56 Year
  Sex: Female
  Weight: 68 kg

DRUGS (8)
  1. AROMASIN [Suspect]
     Active Substance: EXEMESTANE
     Indication: BREAST CANCER METASTATIC
     Dosage: 25 MG, 1X/DAY (AFTER A MEAL)
     Route: 048
     Dates: start: 2014
  2. PANTOPRAZOLE SODIUM. [Concomitant]
     Active Substance: PANTOPRAZOLE SODIUM
     Indication: DYSPEPSIA
  3. HERCEPTIN [Suspect]
     Active Substance: TRASTUZUMAB
     Indication: BREAST CANCER METASTATIC
     Dosage: UNK, EVERY 3 WEEKS (INJECTED IN HER PORT FROM A BAG OVER 30 MINUTES)
     Route: 042
     Dates: start: 201404
  4. PERJETA [Suspect]
     Active Substance: PERTUZUMAB
     Indication: BREAST CANCER METASTATIC
     Dosage: UNK, EVERY 3 WEEKS (INJECTED IN HER PORT FROM A BAG OVER 30 MINUTES)
     Route: 042
     Dates: start: 201404
  5. PROCHLORPERAZINE. [Concomitant]
     Active Substance: PROCHLORPERAZINE
     Dosage: 10 MG, AS NEEDED
  6. BUSPIRONE HCL [Concomitant]
     Active Substance: BUSPIRONE HYDROCHLORIDE
     Indication: NERVOUSNESS
     Dosage: 10 MG, 1X/DAY
     Dates: end: 20150501
  7. AROMASIN [Suspect]
     Active Substance: EXEMESTANE
     Dosage: UNK, 1X/DAY (AFTER MEAL)
     Dates: start: 201404
  8. PANTOPRAZOLE SODIUM. [Concomitant]
     Active Substance: PANTOPRAZOLE SODIUM
     Indication: REFLUX GASTRITIS
     Dosage: 40 MG, 1X/DAY

REACTIONS (4)
  - Thyroid cancer [Not Recovered/Not Resolved]
  - Tenderness [Unknown]
  - Oropharyngeal pain [Unknown]
  - Second primary malignancy [Not Recovered/Not Resolved]

NARRATIVE: CASE EVENT DATE: 2015
